FAERS Safety Report 19645816 (Version 1)
Quarter: 2021Q3

REPORT INFORMATION
  Report Type: Spontaneous
  Country: US (occurrence: US)
  Receive Date: 20210801
  Receipt Date: 20210801
  Transmission Date: 20211014
  Serious: Yes (Disabling)
  Sender: FDA-Public Use
  Company Number: None

PATIENT
  Age: 25 Year
  Sex: Female
  Weight: 74.25 kg

DRUGS (4)
  1. DESONIDE. [Suspect]
     Active Substance: DESONIDE
     Indication: ECZEMA
  2. HYDROCORTISONE. [Suspect]
     Active Substance: HYDROCORTISONE
  3. BETAMETASONE [Suspect]
     Active Substance: BETAMETHASONE
  4. PREDNISONE. [Suspect]
     Active Substance: PREDNISONE

REACTIONS (5)
  - Skin weeping [None]
  - Eczema [None]
  - Therapy non-responder [None]
  - Steroid withdrawal syndrome [None]
  - Insomnia [None]
